FAERS Safety Report 5975447-2 (Version None)
Quarter: 2008Q4

REPORT INFORMATION
  Report Type: 
  Country: None (occurrence: None)
  Receive Date: 20081202
  Receipt Date: 20071209
  Transmission Date: 20090506
  Serious: Yes (Hospitalization)
  Sender: FDA-Public Use
  Company Number: US-AMGEN-QUU256358

PATIENT
  Sex: Female

DRUGS (3)
  1. ENBREL [Suspect]
     Indication: RHEUMATOID ARTHRITIS
     Route: 058
     Dates: start: 20010801
  2. ARAVA [Concomitant]
     Route: 048
     Dates: start: 20000101
  3. PREDNISONE TAB [Concomitant]

REACTIONS (5)
  - ARTHRALGIA [None]
  - INTRA-ABDOMINAL HAEMORRHAGE [None]
  - PNEUMONIA [None]
  - SMALL INTESTINAL PERFORATION [None]
  - THROMBOSIS [None]
